FAERS Safety Report 12154635 (Version 1)
Quarter: 2016Q1

REPORT INFORMATION
  Report Type: Spontaneous
  Country: US (occurrence: None)
  Receive Date: 20160304
  Receipt Date: 20160304
  Transmission Date: 20160526
  Serious: Yes (Disabling)
  Sender: FDA-Public Use
  Company Number: None

PATIENT
  Age: 66 Year
  Sex: Male
  Weight: 79.38 kg

DRUGS (10)
  1. LITHIUM. [Concomitant]
     Active Substance: LITHIUM
  2. DETROL [Concomitant]
     Active Substance: TOLTERODINE TARTRATE
  3. TURMERIC [Concomitant]
     Active Substance: TURMERIC
  4. NARDIL [Concomitant]
     Active Substance: PHENELZINE SULFATE
  5. GLUCOSAMINE [Concomitant]
     Active Substance: GLUCOSAMINE
  6. FLOMAX [Concomitant]
     Active Substance: TAMSULOSIN HYDROCHLORIDE
  7. MOBIC [Concomitant]
     Active Substance: MELOXICAM
  8. XANAX [Concomitant]
     Active Substance: ALPRAZOLAM
  9. MULTIVITAMINS [Concomitant]
     Active Substance: VITAMINS
  10. XANAX [Suspect]
     Active Substance: ALPRAZOLAM
     Indication: SLEEP DISORDER
     Dosage: 1 PILL, AT BEDTIME, TAKEN BY MOUTH

REACTIONS (5)
  - Fatigue [None]
  - Activities of daily living impaired [None]
  - Withdrawal syndrome [None]
  - Fear [None]
  - Headache [None]

NARRATIVE: CASE EVENT DATE: 20160302
